FAERS Safety Report 18755951 (Version 1)
Quarter: 2021Q1

REPORT INFORMATION
  Report Type: Spontaneous
  Country: US (occurrence: US)
  Receive Date: 20210116
  Receipt Date: 20210116
  Transmission Date: 20210419
  Serious: No
  Sender: FDA-Public Use
  Company Number: None

PATIENT
  Age: 70 Year
  Sex: Male
  Weight: 83.25 kg

DRUGS (9)
  1. ONE?A?DAY MULTI VITAMIN [Concomitant]
  2. PREVAGEN [Concomitant]
     Active Substance: DIETARY SUPPLEMENT
  3. CLINDAMYCIN. [Suspect]
     Active Substance: CLINDAMYCIN
     Indication: BONE GRAFT
     Dosage: ?          QUANTITY:21 CAPSULE(S);?
     Route: 048
     Dates: start: 20210113, end: 20210114
  4. CLONAZEPAM 1 MG [Concomitant]
     Active Substance: CLONAZEPAM
  5. UPROPRION 300MG [Concomitant]
  6. CARBIDOPA/LEVODOPA 25 ? 100MG [Concomitant]
  7. VITAMIN D3 [Concomitant]
     Active Substance: CHOLECALCIFEROL
  8. TUMERIC [Concomitant]
     Active Substance: HERBALS\TURMERIC
  9. TAMSULOSIN 0.4MG [Concomitant]
     Active Substance: TAMSULOSIN

REACTIONS (2)
  - Dyspnoea [None]
  - Nausea [None]

NARRATIVE: CASE EVENT DATE: 20210114
